FAERS Safety Report 20874582 (Version 1)
Quarter: 2022Q2

REPORT INFORMATION
  Report Type: Spontaneous
  Country: US (occurrence: US)
  Receive Date: 20220525
  Receipt Date: 20220525
  Transmission Date: 20220721
  Serious: Yes (Other)
  Sender: FDA-Public Use
  Company Number: US-GW PHARMA-2022-US-013683

PATIENT
  Age: 35 Year
  Sex: Male
  Weight: 72.6 kg

DRUGS (2)
  1. EPIDIOLEX [Suspect]
     Active Substance: CANNABIDIOL
     Indication: Epilepsy
     Dosage: 2.9 MILLILITER, BID
     Route: 048
  2. EPIDIOLEX [Suspect]
     Active Substance: CANNABIDIOL
     Dosage: 2.8 MILLIGRAM, BID
     Route: 048

REACTIONS (2)
  - Product administration interrupted [Unknown]
  - Therapy change [Unknown]

NARRATIVE: CASE EVENT DATE: 20220425
